FAERS Safety Report 15330292 (Version 2)
Quarter: 2018Q3

REPORT INFORMATION
  Report Type: Report from Study
  Country: US (occurrence: US)
  Receive Date: 20180829
  Receipt Date: 20180831
  Transmission Date: 20181010
  Serious: No
  Sender: FDA-Public Use
  Company Number: US-SA-2015SA209179

PATIENT
  Age: 37 Year
  Sex: Female
  Weight: 59.87 kg

DRUGS (5)
  1. ALEMTUZUMAB [Suspect]
     Active Substance: ALEMTUZUMAB
     Dosage: UNK UNK,UNK
     Route: 065
     Dates: start: 20120221, end: 20120223
  2. PROAIR HFA [Concomitant]
     Active Substance: ALBUTEROL SULFATE
     Indication: DRUG THERAPY
     Dosage: 1 DF,QD
     Route: 055
     Dates: start: 2010
  3. SUBOXONE [Concomitant]
     Active Substance: BUPRENORPHINE HYDROCHLORIDE\NALOXONE HYDROCHLORIDE
     Indication: DRUG THERAPY
     Dosage: 2 DF,QD
     Route: 048
     Dates: start: 201204, end: 20170501
  4. ALEMTUZUMAB [Suspect]
     Active Substance: ALEMTUZUMAB
     Indication: MULTIPLE SCLEROSIS
     Dosage: UNK UNK,UNK
     Route: 065
     Dates: start: 20110221, end: 20110225
  5. IBUPROFEN. [Concomitant]
     Active Substance: IBUPROFEN
     Indication: DRUG THERAPY
     Dosage: 800 MG,QD
     Route: 048
     Dates: start: 1992

REACTIONS (1)
  - Basedow^s disease [Not Recovered/Not Resolved]

NARRATIVE: CASE EVENT DATE: 20130916
